FAERS Safety Report 12784642 (Version 3)
Quarter: 2016Q4

REPORT INFORMATION
  Report Type: Spontaneous
  Country: DE (occurrence: DE)
  Receive Date: 20160927
  Receipt Date: 20161201
  Transmission Date: 20170207
  Serious: Yes (Hospitalization, Other)
  Sender: FDA-Public Use
  Company Number: DE-JNJFOC-20160923990

PATIENT
  Age: 70 Year
  Sex: Female
  Weight: 107 kg

DRUGS (3)
  1. XARELTO [Suspect]
     Active Substance: RIVAROXABAN
     Indication: EMBOLISM VENOUS
     Route: 048
     Dates: start: 20160503, end: 20160630
  2. XARELTO [Suspect]
     Active Substance: RIVAROXABAN
     Indication: THROMBOSIS
     Route: 048
     Dates: start: 20160503, end: 20160630
  3. MARCUMAR [Concomitant]
     Active Substance: PHENPROCOUMON
     Route: 065

REACTIONS (8)
  - Erythema [Unknown]
  - Fall [Unknown]
  - Surgery [Unknown]
  - Vaginal haemorrhage [Unknown]
  - Peripheral swelling [Unknown]
  - Pain in extremity [Unknown]
  - Haemorrhage [Not Recovered/Not Resolved]
  - Dizziness [Unknown]

NARRATIVE: CASE EVENT DATE: 20160504
